FAERS Safety Report 21756951 (Version 1)
Quarter: 2022Q4

REPORT INFORMATION
  Report Type: Spontaneous
  Country: US (occurrence: None)
  Receive Date: 20221220
  Receipt Date: 20221220
  Transmission Date: 20230112
  Serious: Yes (Death, Other)
  Sender: FDA-Public Use
  Company Number: 2022A410998

PATIENT

DRUGS (2)
  1. NEXIUM [Suspect]
     Active Substance: ESOMEPRAZOLE MAGNESIUM
     Dosage: FOR VARIOUS DATES AND YEARS INCLUDING BUT NOT LIMITED TO ATLEAST APPROXIMATEL BIGINNING 2014
     Route: 048
  2. PROTONIX [Suspect]
     Active Substance: PANTOPRAZOLE SODIUM
     Dosage: FOR VARIOUS DATES AND YEARS INCLUDING BUT NOT LIMITED TO ATLEAST APPROXIMATELY BIGINNING IN 2014
     Route: 065

REACTIONS (4)
  - Death [Fatal]
  - Gastric cancer [Unknown]
  - Renal failure [Unknown]
  - Rebound acid hypersecretion [Unknown]
